FAERS Safety Report 8852672 (Version 2)
Quarter: 2012Q4

REPORT INFORMATION
  Report Type: 
  Country: FR (occurrence: FR)
  Receive Date: 20121022
  Receipt Date: 20121116
  Transmission Date: 20130627
  Serious: Yes (Death, Life-Threatening, Hospitalization)
  Sender: FDA-Public Use
  Company Number: FR-B.I. PHARMACEUTICALS,INC./RIDGEFIELD-2012-FF-01523FF

PATIENT
  Age: 80 Year
  Sex: Male

DRUGS (3)
  1. PRADAXA [Suspect]
     Indication: ATRIAL FIBRILLATION
     Dosage: 220 mg
     Route: 048
     Dates: start: 20120914
  2. PROTON PUMP INHIBITOR [Concomitant]
     Indication: GASTROINTESTINAL DISORDER
  3. DUOPLAVIN [Concomitant]
     Indication: CORONARY ARTERY DISEASE

REACTIONS (6)
  - Shock haemorrhagic [Fatal]
  - Rectal haemorrhage [Fatal]
  - Melaena [Fatal]
  - Microcytic anaemia [Fatal]
  - Activated partial thromboplastin time prolonged [Fatal]
  - Factor V deficiency [Fatal]
